FAERS Safety Report 6775747-2 (Version None)
Quarter: 2010Q2

REPORT INFORMATION
  Report Type: 
  Country: None (occurrence: None)
  Receive Date: 20100617
  Receipt Date: 20100610
  Transmission Date: 20101027
  Serious: Yes (Other)
  Sender: FDA-Public Use
  Company Number: CHPA2010JP10063

PATIENT
  Age: 86 Year
  Sex: Female

DRUGS (1)
  1. TAVEGYL (NCH) [Suspect]
     Indication: PRURITUS
     Dosage: UNK,UNK
     Route: 048
     Dates: start: 20100525

REACTIONS (2)
  - CARDIAC FAILURE [None]
  - OEDEMA [None]
